FAERS Safety Report 7561073-0 (Version None)
Quarter: 2011Q2

REPORT INFORMATION
  Report Type: 
  Country: None (occurrence: None)
  Receive Date: 20110621
  Receipt Date: 20110616
  Transmission Date: 20111010
  Serious: Yes (Disabling, Other)
  Sender: FDA-Public Use
  Company Number: US-PFIZER INC-2010006364

PATIENT
  Sex: Male

DRUGS (4)
  1. ZOLPIDEM [Concomitant]
     Indication: INSOMNIA
     Dosage: UNK
     Dates: start: 20071018
  2. PREDNISONE [Concomitant]
     Indication: ANTIINFLAMMATORY THERAPY
     Dosage: UNK
     Dates: start: 20050315, end: 20090101
  3. AZITHROMYCIN [Concomitant]
     Indication: BACTERIAL INFECTION
     Dosage: UNK
     Dates: start: 20060320, end: 20090101
  4. CHANTIX [Suspect]
     Indication: SMOKING CESSATION THERAPY
     Dosage: STARTING PACK AND 1 MG CONTINUING PACKS
     Dates: start: 20070915, end: 20071201

REACTIONS (14)
  - ABNORMAL BEHAVIOUR [None]
  - MEMORY IMPAIRMENT [None]
  - PAIN [None]
  - ANGER [None]
  - INSOMNIA [None]
  - DEPRESSION [None]
  - COGNITIVE DISORDER [None]
  - STRESS [None]
  - AGGRESSION [None]
  - TREMOR [None]
  - ANXIETY [None]
  - MOOD ALTERED [None]
  - SUICIDE ATTEMPT [None]
  - IRRITABILITY [None]
